FAERS Safety Report 6583616-6 (Version None)
Quarter: 2010Q1

REPORT INFORMATION
  Report Type: 
  Country: None (occurrence: None)
  Receive Date: 20100216
  Receipt Date: 20100129
  Transmission Date: 20100710
  Serious: Yes (Other)
  Sender: FDA-Public Use
  Company Number: PHHY2010US05139

PATIENT
  Sex: Male

DRUGS (2)
  1. GLEEVEC [Suspect]
     Dosage: 400 MG, UNK
  2. GLEEVEC [Suspect]
     Dosage: 200 MG, UNK

REACTIONS (4)
  - BLOOD BILIRUBIN INCREASED [None]
  - GASTROINTESTINAL STROMAL TUMOUR [None]
  - HEPATIC EMBOLISATION [None]
  - HEPATIC ENZYME INCREASED [None]
